FAERS Safety Report 8181057-1 (Version None)
Quarter: 2012Q1

REPORT INFORMATION
  Report Type: 
  Country: None (occurrence: None)
  Receive Date: 20120229
  Receipt Date: 20120214
  Transmission Date: 20120608
  Serious: Yes (Other)
  Sender: FDA-Public Use
  Company Number: FK201200459

PATIENT
  Age: 93 Year

DRUGS (1)
  1. METHOTREXATE [Suspect]
     Indication: PEMPHIGOID

REACTIONS (1)
  - DEPRESSION [None]
